FAERS Safety Report 5019332-1 (Version None)
Quarter: 2006Q2

REPORT INFORMATION
  Report Type: 
  Country: None (occurrence: None)
  Receive Date: 20060531
  Receipt Date: 20060512
  Transmission Date: 20061013
  Serious: Yes (Hospitalization)
  Sender: FDA-Public Use
  Company Number: 223269

PATIENT
  Age: 57 Year
  Sex: Male

DRUGS (2)
  1. AVASTIN [Suspect]
     Indication: COLON CANCER
     Dosage: 575 MG Q3W INTRAVENOUS
     Route: 042
     Dates: start: 20060207, end: 20060228
  2. CAPECITABINE (CAPECITABINE) [Suspect]
     Indication: COLON CANCER
     Dosage: 2500 MG BID ORAL
     Route: 048
     Dates: start: 20060207, end: 20060312

REACTIONS (17)
  - BLOOD BILIRUBIN INCREASED [None]
  - BLOOD PRESSURE INCREASED [None]
  - BLOOD UREA INCREASED [None]
  - CELLULITIS [None]
  - DIARRHOEA [None]
  - DRUG INEFFECTIVE [None]
  - EPISTAXIS [None]
  - GASTRIC HAEMORRHAGE [None]
  - HAEMATEMESIS [None]
  - HEADACHE [None]
  - INFECTION [None]
  - MELAENA [None]
  - ORAL CANDIDIASIS [None]
  - PHOTOPHOBIA [None]
  - ULCER HAEMORRHAGE [None]
  - VENOUS THROMBOSIS LIMB [None]
  - VOMITING [None]
